FAERS Safety Report 14485556 (Version 1)
Quarter: 2018Q1

REPORT INFORMATION
  Report Type: Spontaneous
  Country: JP (occurrence: JP)
  Receive Date: 20180205
  Receipt Date: 20180205
  Transmission Date: 20180509
  Serious: Yes (Hospitalization, Other)
  Sender: FDA-Public Use
  Company Number: JP-JNJFOC-20171231476

PATIENT
  Age: 59 Year
  Sex: Female
  Weight: 48.8 kg

DRUGS (5)
  1. BISOPROLOL FUMARATE. [Concomitant]
     Active Substance: BISOPROLOL FUMARATE
     Route: 065
  2. XARELTO [Suspect]
     Active Substance: RIVAROXABAN
     Indication: SINUS NODE DYSFUNCTION
     Route: 048
     Dates: start: 201704
  3. FERROUS CITRATE [Concomitant]
     Active Substance: FERROUS CITRATE
     Route: 065
  4. AZOSEMIDE [Concomitant]
     Active Substance: AZOSEMIDE
  5. ALENDRONIC ACID [Concomitant]
     Active Substance: ALENDRONIC ACID
     Route: 065

REACTIONS (10)
  - Immune-mediated necrotising myopathy [Unknown]
  - Duodenogastric reflux [Unknown]
  - Myopathy [Unknown]
  - Nausea [Unknown]
  - Product use in unapproved indication [Unknown]
  - Intestinal metaplasia [Unknown]
  - Haemorrhoids [Unknown]
  - Off label use [Unknown]
  - Anaemia [Recovering/Resolving]
  - Chronic gastritis [Unknown]

NARRATIVE: CASE EVENT DATE: 2017
